FAERS Safety Report 8554806-8 (Version None)
Quarter: 2012Q3

REPORT INFORMATION
  Report Type: 
  Country: None (occurrence: None)
  Receive Date: 20120731
  Receipt Date: 20120726
  Transmission Date: 20120928
  Serious: Yes (Hospitalization)
  Sender: FDA-Public Use
  Company Number: US-ACTELION-A-NJ2012-69110

PATIENT
  Age: 56 Year
  Sex: Male

DRUGS (5)
  1. FUROSEMIDE [Concomitant]
  2. SILDENAFIL [Concomitant]
  3. VENTAVIS [Suspect]
     Indication: PULMONARY ARTERIAL HYPERTENSION
     Route: 055
  4. ASPIRIN [Concomitant]
  5. LETAIRIS [Concomitant]

REACTIONS (2)
  - CONFUSIONAL STATE [None]
  - HYPOXIA [None]
